FAERS Safety Report 10027517 (Version 1)
Quarter: 2014Q1

REPORT INFORMATION
  Report Type: Spontaneous
  Country: US (occurrence: None)
  Receive Date: 20140218
  Receipt Date: 20140218
  Transmission Date: 20141002
  Serious: Yes (Other)
  Sender: FDA-Public Use
  Company Number: 2010S1004614

PATIENT
  Age: 65 Year
  Sex: Female
  Weight: 71.99 kg

DRUGS (1)
  1. FLEET PHOSPHO-SODA [Suspect]
     Indication: COLONOSCOPY
     Route: 048

REACTIONS (5)
  - Retching [None]
  - Gastroenteritis [None]
  - Dehydration [None]
  - Renal failure chronic [None]
  - Acute phosphate nephropathy [None]
